FAERS Safety Report 15899735 (Version 1)
Quarter: 2019Q1

REPORT INFORMATION
  Report Type: Spontaneous
  Country: US (occurrence: US)
  Receive Date: 20190201
  Receipt Date: 20190201
  Transmission Date: 20190417
  Serious: No
  Sender: FDA-Public Use
  Company Number: US-PFIZER INC-2019048912

PATIENT
  Age: 52 Year
  Sex: Male
  Weight: 93.88 kg

DRUGS (2)
  1. LYRICA [Suspect]
     Active Substance: PREGABALIN
     Indication: NEUROPATHY PERIPHERAL
     Dosage: 75 MG, 3X/DAY
     Route: 048
  2. LYRICA [Suspect]
     Active Substance: PREGABALIN
     Indication: PAIN

REACTIONS (5)
  - Muscular weakness [Unknown]
  - Paraesthesia [Unknown]
  - Dyskinesia [Unknown]
  - Hypoaesthesia [Unknown]
  - Tremor [Unknown]
